FAERS Safety Report 17702861 (Version 1)
Quarter: 2020Q2

REPORT INFORMATION
  Report Type: Spontaneous
  Country: US (occurrence: US)
  Receive Date: 20200424
  Receipt Date: 20200424
  Transmission Date: 20200714
  Serious: No
  Sender: FDA-Public Use
  Company Number: US-AUROBINDO-AUR-APL-2019-024487

PATIENT
  Age: 18 Year
  Sex: Male
  Weight: 80 kg

DRUGS (1)
  1. MINOCYCLINE HYDROCHLORIDE CAPSULES USP 100 MG [Suspect]
     Active Substance: MINOCYCLINE HYDROCHLORIDE
     Indication: ACNE
     Dosage: 100 MILLIGRAM, DAILY
     Route: 048

REACTIONS (6)
  - Flat affect [Unknown]
  - Feeling abnormal [Unknown]
  - Emotional poverty [Unknown]
  - Anxiety [Recovered/Resolved]
  - Headache [Unknown]
  - Amnesia [Unknown]
